FAERS Safety Report 18880363 (Version 1)
Quarter: 2021Q1

REPORT INFORMATION
  Report Type: Spontaneous
  Country: CN (occurrence: CN)
  Receive Date: 20210211
  Receipt Date: 20210211
  Transmission Date: 20210420
  Serious: Yes (Other)
  Sender: FDA-Public Use
  Company Number: CN-BAXTER-2021BAX002591

PATIENT
  Age: 48 Year
  Sex: Female

DRUGS (12)
  1. SODIUM CHLORIDE. [Suspect]
     Active Substance: SODIUM CHLORIDE
     Dosage: DOSE RE?INTRODUCED; DOXORUBICIN HYDROCHLORIDE LIPOSOME + SODIUM CHLORIDE
     Route: 041
  2. DOXORUBICIN HYDROCHLORIDE LIPOSOME [Suspect]
     Active Substance: DOXORUBICIN HYDROCHLORIDE
     Dosage: 4TH CHEMOTHERAPY; DOXORUBICIN HYDROCHLORIDE LIPOSOME 60 MG + SODIUM CHLORIDE 100 ML
     Route: 041
     Dates: start: 20201208, end: 20201208
  3. DOXORUBICIN HYDROCHLORIDE LIPOSOME [Suspect]
     Active Substance: DOXORUBICIN HYDROCHLORIDE
     Dosage: DOSE RE?INTRODUCED; DOXORUBICIN HYDROCHLORIDE LIPOSOME + SODIUM CHLORIDE
     Route: 041
  4. ENDOXAN [Suspect]
     Active Substance: CYCLOPHOSPHAMIDE
     Dosage: DOSE RE?INTRODUCED; CYCLOPHOSPHAMIDE +GLUCOSE
     Route: 041
  5. GLUCOSE [Suspect]
     Active Substance: DEXTROSE
     Indication: MEDICATION DILUTION
     Dosage: 1?3RD CHEMOTHERAPY; CYCLOPHOSPHAMIDE +GLUCOSE
     Route: 041
  6. GLUCOSE [Suspect]
     Active Substance: DEXTROSE
     Dosage: DOSE RE?INTRODUCED; CYCLOPHOSPHAMIDE + GLUCOSE
     Route: 041
  7. DOXORUBICIN HYDROCHLORIDE LIPOSOME [Suspect]
     Active Substance: DOXORUBICIN HYDROCHLORIDE
     Indication: BREAST CANCER FEMALE
     Dosage: 1?3RD CHEMOTHERAPY; DOXORUBICIN HYDROCHLORIDE LIPOSOME + SODIUM CHLORIDE
     Route: 041
  8. ENDOXAN [Suspect]
     Active Substance: CYCLOPHOSPHAMIDE
     Indication: BREAST CANCER FEMALE
     Dosage: 1?3RD CHEMOTHERAPY; CYCLOPHOSPHAMIDE +GLUCOSE
     Route: 041
  9. ENDOXAN [Suspect]
     Active Substance: CYCLOPHOSPHAMIDE
     Dosage: 4TH CHEMOTHERAPY; CYCLOPHOSPHAMIDE 1 G + GLUCOSE 250 ML
     Route: 041
     Dates: start: 20201208, end: 20201208
  10. SODIUM CHLORIDE. [Suspect]
     Active Substance: SODIUM CHLORIDE
     Indication: MEDICATION DILUTION
     Dosage: 1?3RD CHEMOTHERAPY; DOXORUBICIN HYDROCHLORIDE LIPOSOME + SODIUM CHLORIDE
     Route: 041
  11. SODIUM CHLORIDE. [Suspect]
     Active Substance: SODIUM CHLORIDE
     Dosage: 4TH CHEMOTHERAPY; DOXORUBICIN HYDROCHLORIDE LIPOSOME 60 MG + SODIUM CHLORIDE 100 ML
     Route: 041
     Dates: start: 20201208, end: 20201208
  12. GLUCOSE [Suspect]
     Active Substance: DEXTROSE
     Dosage: 4TH CHEMOTHERAPY; CYCLOPHOSPHAMIDE 1 G +GLUCOSE 250 ML
     Route: 041
     Dates: start: 20201208, end: 20201208

REACTIONS (7)
  - Dysphagia [Recovering/Resolving]
  - Haematemesis [Recovering/Resolving]
  - Regurgitation [Unknown]
  - Cardiotoxicity [Recovering/Resolving]
  - Nausea [Recovered/Resolved]
  - Vomiting [Recovered/Resolved]
  - Nausea [Recovering/Resolving]

NARRATIVE: CASE EVENT DATE: 20201208
